FAERS Safety Report 20689266 (Version 3)
Quarter: 2022Q2

REPORT INFORMATION
  Report Type: Spontaneous
  Country: JP (occurrence: JP)
  Receive Date: 20220408
  Receipt Date: 20220524
  Transmission Date: 20220721
  Serious: No
  Sender: FDA-Public Use
  Company Number: JP-GLAXOSMITHKLINE-JP2022JPN061101

PATIENT

DRUGS (3)
  1. SOTROVIMAB [Suspect]
     Active Substance: SOTROVIMAB
     Indication: COVID-19
     Dosage: 500 MG/DAY
     Route: 042
     Dates: start: 20220404, end: 20220404
  2. VEKLURY [Suspect]
     Active Substance: REMDESIVIR
     Indication: COVID-19
     Dosage: 200 MG/DAY
     Route: 042
     Dates: start: 20220404, end: 20220404
  3. VEKLURY [Suspect]
     Active Substance: REMDESIVIR
     Dosage: 100 MG/DAY
     Route: 042
     Dates: start: 20220405, end: 20220406

REACTIONS (1)
  - Exposure during pregnancy [Unknown]
